FAERS Safety Report 8227800-4 (Version None)
Quarter: 2012Q1

REPORT INFORMATION
  Report Type: 
  Country: None (occurrence: None)
  Receive Date: 20120322
  Receipt Date: 20120320
  Transmission Date: 20120608
  Serious: Yes (Death, Hospitalization)
  Sender: FDA-Public Use
  Company Number: BE-ROCHE-1046164

PATIENT
  Sex: Male
  Weight: 90 kg

DRUGS (6)
  1. KEPPRA [Concomitant]
     Indication: EPILEPSY
     Route: 048
  2. METHYLPREDNISOLONE [Concomitant]
     Indication: GLIOBLASTOMA
     Route: 048
  3. ESCITALOPRAM [Concomitant]
     Indication: DEPRESSION
     Route: 048
  4. PANTOPRAZOLE [Concomitant]
     Route: 048
  5. AVASTIN [Suspect]
     Indication: GLIOBLASTOMA
     Route: 042
     Dates: start: 20120220, end: 20120220
  6. XANAX [Concomitant]
     Indication: DEPRESSION
     Route: 048

REACTIONS (3)
  - INFECTIOUS PERITONITIS [None]
  - SEPTIC SHOCK [None]
  - ABDOMINAL PAIN [None]
